FAERS Safety Report 4291709-1 (Version None)
Quarter: 2004Q1

REPORT INFORMATION
  Report Type: 
  Country: None (occurrence: None)
  Receive Date: 20040211
  Receipt Date: 20021211
  Transmission Date: 20041129
  Serious: No
  Sender: FDA-Public Use
  Company Number: US-GLAXOSMITHKLINE-A0388882A

PATIENT
  Age: 54 Year
  Sex: Female

DRUGS (6)
  1. IMITREX [Suspect]
     Route: 058
     Dates: start: 19960101
  2. OXYCONTIN [Concomitant]
  3. PREVACID [Concomitant]
  4. CELEXA [Concomitant]
  5. VENTOLIN [Concomitant]
  6. PREMARIN [Concomitant]

REACTIONS (14)
  - CARDIAC MURMUR [None]
  - DRY MOUTH [None]
  - DYSPEPSIA [None]
  - DYSPNOEA [None]
  - HEART RATE INCREASED [None]
  - INJECTION SITE BURNING [None]
  - INJECTION SITE DISCOLOURATION [None]
  - INJECTION SITE DISCOMFORT [None]
  - INJECTION SITE ERYTHEMA [None]
  - INJECTION SITE PRURITUS [None]
  - INSOMNIA [None]
  - PARAESTHESIA [None]
  - PHARMACEUTICAL PRODUCT COMPLAINT [None]
  - TACHYCARDIA [None]
